FAERS Safety Report 24855934 (Version 1)
Quarter: 2025Q1

REPORT INFORMATION
  Report Type: Spontaneous
  Country: CZ (occurrence: CZ)
  Receive Date: 20250117
  Receipt Date: 20250117
  Transmission Date: 20250409
  Serious: Yes (Hospitalization)
  Sender: MYLAN
  Company Number: CZ-MYLANLABS-2025M1003717

PATIENT
  Age: 70 Year
  Sex: Female

DRUGS (7)
  1. ZOLPIDEM [Suspect]
     Active Substance: ZOLPIDEM TARTRATE
     Indication: Insomnia
     Dosage: UNK UNK, QD, 20-50MG AT NIGHT
     Route: 065
     Dates: start: 2004, end: 2014
  2. ZOLPIDEM [Suspect]
     Active Substance: ZOLPIDEM TARTRATE
     Dosage: UNK UNK, Q2W, INITIALLY CONTINUED AT REDUCED DOSE BY 25% EVERY TWO WEEKS AND GRADUALLY STOPPED
     Route: 065
     Dates: start: 2004, end: 2014
  3. PERINDOPRIL [Concomitant]
     Active Substance: PERINDOPRIL
     Indication: Hypertension
     Route: 065
  4. AMLODIPINE [Concomitant]
     Active Substance: AMLODIPINE BESYLATE
     Indication: Hypertension
     Route: 065
  5. BETAXOLOL [Concomitant]
     Active Substance: BETAXOLOL
     Indication: Hypertension
     Route: 065
  6. METFORMIN [Concomitant]
     Active Substance: METFORMIN HYDROCHLORIDE
     Indication: Type 2 diabetes mellitus
     Route: 065
  7. ALLOPURINOL [Concomitant]
     Active Substance: ALLOPURINOL
     Indication: Hyperuricaemia
     Route: 065

REACTIONS (6)
  - Drug abuse [Recovered/Resolved]
  - Drug dependence [Recovered/Resolved]
  - Withdrawal syndrome [Recovered/Resolved]
  - Confusional state [Recovered/Resolved]
  - Psychomotor hyperactivity [Recovered/Resolved]
  - Tremor [Recovered/Resolved]
